FAERS Safety Report 5001557-2 (Version None)
Quarter: 2006Q2

REPORT INFORMATION
  Report Type: 
  Country: None (occurrence: None)
  Receive Date: 20060515
  Receipt Date: 20050809
  Transmission Date: 20061013
  Serious: Yes (Hospitalization, Other)
  Sender: FDA-Public Use
  Company Number: PHBS2005BE11488

PATIENT
  Age: 34 Year
  Sex: Female

DRUGS (3)
  1. TEGRETOL [Suspect]
     Indication: NEURALGIA
     Dosage: 200 MG/DAY
     Route: 048
  2. CONTRACEPTIVES UNS [Interacting]
     Route: 048
  3. ISOTEN [Concomitant]
     Dosage: 5 MG/DAY
     Route: 065

REACTIONS (5)
  - CAESAREAN SECTION [None]
  - DRUG EXPOSURE DURING PREGNANCY [None]
  - NORMAL NEWBORN [None]
  - PREGNANCY ON ORAL CONTRACEPTIVE [None]
  - PREMATURE SEPARATION OF PLACENTA [None]
